FAERS Safety Report 23677481 (Version 1)
Quarter: 2024Q1

REPORT INFORMATION
  Report Type: Spontaneous
  Country: US (occurrence: US)
  Receive Date: 20240327
  Receipt Date: 20240327
  Transmission Date: 20240410
  Serious: No
  Sender: FDA-Public Use
  Company Number: US-Eisai-EC-2024-157569

PATIENT
  Age: 66 Year
  Sex: Female

DRUGS (1)
  1. LEQEMBI [Suspect]
     Active Substance: LECANEMAB-IRMB
     Indication: Dementia Alzheimer^s type
     Dosage: DOSE UNKNOWN
     Route: 041
     Dates: start: 20231201, end: 20240112

REACTIONS (1)
  - Amyloid related imaging abnormality-oedema/effusion [Unknown]

NARRATIVE: CASE EVENT DATE: 20230112
